FAERS Safety Report 7280850-7 (Version None)
Quarter: 2011Q1

REPORT INFORMATION
  Report Type: 
  Country: None (occurrence: None)
  Receive Date: 20110208
  Receipt Date: 20100218
  Transmission Date: 20110831
  Serious: Yes (Other)
  Sender: FDA-Public Use
  Company Number: US-PFIZER INC-2010021587

PATIENT

DRUGS (2)
  1. ERAXIS [Suspect]
     Indication: FUNGAL INFECTION
  2. VFEND [Suspect]

REACTIONS (1)
  - HYPERCALCAEMIA [None]
